FAERS Safety Report 7303939-2 (Version None)
Quarter: 2011Q1

REPORT INFORMATION
  Report Type: 
  Country: None (occurrence: None)
  Receive Date: 20110221
  Receipt Date: 20110127
  Transmission Date: 20110831
  Serious: Yes (Other)
  Sender: FDA-Public Use
  Company Number: US-ROCHE-760113

PATIENT
  Sex: Female

DRUGS (3)
  1. TAXOTERE [Suspect]
     Indication: BREAST CANCER
     Dosage: FREQUENCY: EVERY CYCLE
     Route: 041
     Dates: start: 20101216, end: 20101216
  2. HERCEPTIN [Suspect]
     Indication: BREAST CANCER
     Dosage: FREQUENCY: EVERY CYCLE
     Route: 042
     Dates: start: 20101216, end: 20101216
  3. CARBOPLATIN [Suspect]
     Indication: BREAST CANCER
     Dosage: FREQUENCY: EVERY CYCLE
     Route: 042
     Dates: start: 20101216, end: 20101216

REACTIONS (4)
  - BLISTER [None]
  - RASH [None]
  - STOMATITIS [None]
  - VAGINAL INFLAMMATION [None]
